FAERS Safety Report 9369294 (Version 1)
Quarter: 2013Q2

REPORT INFORMATION
  Report Type: Spontaneous
  Country: US (occurrence: None)
  Receive Date: 20130625
  Receipt Date: 20130625
  Transmission Date: 20140414
  Serious: No
  Sender: FDA-Public Use
  Company Number: None

PATIENT
  Age: 72 Year
  Sex: Female

DRUGS (1)
  1. HUMIRA [Suspect]
     Dosage: EVERY 2 WEEKS
     Route: 058
     Dates: start: 20121204, end: 20130520

REACTIONS (1)
  - Weight decreased [None]
